FAERS Safety Report 24415342 (Version 1)
Quarter: 2024Q4

REPORT INFORMATION
  Report Type: Spontaneous
  Country: US (occurrence: US)
  Receive Date: 20241009
  Receipt Date: 20241009
  Transmission Date: 20250114
  Serious: Yes (Other)
  Sender: TEVA
  Company Number: US-TEVA-VS-3251448

PATIENT
  Age: 18 Year
  Sex: Female

DRUGS (1)
  1. RISPERIDONE [Suspect]
     Active Substance: RISPERIDONE
     Indication: Product used for unknown indication
     Route: 065

REACTIONS (5)
  - Tardive dyskinesia [Unknown]
  - Somnolence [Unknown]
  - Condition aggravated [Unknown]
  - Sedation [Unknown]
  - Fatigue [Unknown]
